FAERS Safety Report 8782853 (Version 2)
Quarter: 2012Q4

REPORT INFORMATION
  Report Type: 
  Country: JP (occurrence: JP)
  Receive Date: 20120913
  Receipt Date: 20120918
  Transmission Date: 20130627
  Serious: Yes (Death)
  Sender: FDA-Public Use
  Company Number: JP-GLAXOSMITHKLINE-B0829456A

PATIENT
  Age: 77 Year
  Sex: Male

DRUGS (2)
  1. SAMTIREL [Suspect]
     Indication: PNEUMOCYSTIS JIROVECI PNEUMONIA
     Dosage: 750MG Twice per day
     Route: 048
     Dates: start: 20120901, end: 20120905
  2. DORIPENEM [Concomitant]
     Indication: PNEUMONIA
     Dosage: .25G Twice per day
     Route: 042
     Dates: start: 20120810, end: 20120905

REACTIONS (1)
  - Sepsis [Fatal]
